FAERS Safety Report 11886034 (Version 3)
Quarter: 2016Q1

REPORT INFORMATION
  Report Type: Spontaneous
  Country: US (occurrence: US)
  Receive Date: 20160104
  Receipt Date: 20160304
  Transmission Date: 20160526
  Serious: No
  Sender: FDA-Public Use
  Company Number: US-PFIZER INC-2015433619

PATIENT
  Age: 78 Year
  Sex: Female
  Weight: 74.84 kg

DRUGS (3)
  1. GABAPENTIN. [Suspect]
     Active Substance: GABAPENTIN
     Indication: NEUROPATHY PERIPHERAL
     Dosage: 300 MG, 3X/DAY (100 MG, CAPSULES, ORALLY, THREE OF THOSE THREE TIMES A DAY)
     Route: 048
  2. LYRICA [Concomitant]
     Active Substance: PREGABALIN
     Dosage: UNK
  3. GABAPENTIN. [Suspect]
     Active Substance: GABAPENTIN
     Dosage: 300 MG, 3X/DAY
     Dates: start: 2006, end: 2014

REACTIONS (3)
  - Drug ineffective [Recovered/Resolved]
  - Product use issue [Unknown]
  - Dizziness [Recovered/Resolved]
